FAERS Safety Report 17782116 (Version 1)
Quarter: 2020Q2

REPORT INFORMATION
  Report Type: Spontaneous
  Country: GB (occurrence: GB)
  Receive Date: 20200514
  Receipt Date: 20200514
  Transmission Date: 20200714
  Serious: No
  Sender: FDA-Public Use
  Company Number: GB-ALKEM LABORATORIES LIMITED-GB-ALKEM-2020-00682

PATIENT
  Age: 78 Year
  Sex: Male

DRUGS (1)
  1. PREGABALIN. [Suspect]
     Active Substance: PREGABALIN
     Indication: ANXIETY
     Dosage: UNK
     Route: 048
     Dates: start: 202001, end: 202002

REACTIONS (1)
  - Oedema [Unknown]

NARRATIVE: CASE EVENT DATE: 20200212
